FAERS Safety Report 9346416 (Version 1)
Quarter: 2013Q2

REPORT INFORMATION
  Report Type: Spontaneous
  Country: FR (occurrence: FR)
  Receive Date: 20130613
  Receipt Date: 20130613
  Transmission Date: 20140414
  Serious: Yes (Hospitalization, Other)
  Sender: FDA-Public Use
  Company Number: FR-PFIZER INC-2013174764

PATIENT
  Age: 84 Year
  Sex: Male

DRUGS (5)
  1. ZOLOFT [Suspect]
     Dosage: 50 MG, 1X/DAY
     Route: 048
  2. SKENAN [Suspect]
     Indication: SCIATICA
     Dosage: UNK
     Route: 048
     Dates: start: 20130318, end: 20130321
  3. OMIX [Concomitant]
     Dosage: 0.4 MG, 1X/DAY
     Route: 048
  4. LEXOMIL [Concomitant]
     Dosage: 3 MG IN THE MORNING AND 6 MG IN THE EVENING
     Route: 048
  5. OGAST [Concomitant]
     Dosage: 30 MG, DAILY

REACTIONS (2)
  - Urinary retention [Unknown]
  - Urinary tract infection [Unknown]
